FAERS Safety Report 7308713-9 (Version None)
Quarter: 2011Q1

REPORT INFORMATION
  Report Type: 
  Country: None (occurrence: None)
  Receive Date: 20110223
  Receipt Date: 20110210
  Transmission Date: 20110831
  Serious: Yes (Other)
  Sender: FDA-Public Use
  Company Number: PHHY2010GB46950

PATIENT
  Age: 51 Year
  Sex: Male

DRUGS (2)
  1. SUTENT [Suspect]
     Indication: METASTASES TO BONE
     Dosage: 50 MG ONCE DAILY FOR 28 DAYS IN 6-WEEK CYCLES
     Dates: start: 20060301, end: 20080201
  2. ZOLEDRONIC ACID [Suspect]
     Indication: METASTASES TO BONE

REACTIONS (7)
  - OSTEONECROSIS OF JAW [None]
  - SENSORY DISTURBANCE [None]
  - GINGIVAL RECESSION [None]
  - PAIN IN JAW [None]
  - ORAL DISCOMFORT [None]
  - BONE DISORDER [None]
  - SECONDARY SEQUESTRUM [None]
